FAERS Safety Report 9924808 (Version 2)
Quarter: 2014Q2

REPORT INFORMATION
  Report Type: Spontaneous
  Country: US (occurrence: US)
  Receive Date: 20140226
  Receipt Date: 20140403
  Transmission Date: 20141212
  Serious: Yes (Other)
  Sender: FDA-Public Use
  Company Number: US-AMGEN-USASP2014013418

PATIENT
  Age: 63 Year
  Sex: Female

DRUGS (2)
  1. ENBREL [Suspect]
     Indication: RHEUMATOID ARTHRITIS
     Dosage: 50 MG, ONCE A WEEK
     Route: 065
     Dates: start: 20130812, end: 20140121
  2. METHOTREXATE [Concomitant]
     Dosage: 15 MG, ONCE A WEEK
     Route: 048
     Dates: start: 2013

REACTIONS (11)
  - Hypoaesthesia [Recovered/Resolved]
  - Nuclear magnetic resonance imaging brain abnormal [Not Recovered/Not Resolved]
  - Limb operation [Unknown]
  - Activities of daily living impaired [Not Recovered/Not Resolved]
  - Walking aid user [Not Recovered/Not Resolved]
  - Carpal tunnel decompression [Recovered/Resolved]
  - Tendon sheath incision [Recovered/Resolved]
  - Arthralgia [Not Recovered/Not Resolved]
  - Chondrolysis [Not Recovered/Not Resolved]
  - Insomnia [Not Recovered/Not Resolved]
  - Asthenia [Not Recovered/Not Resolved]
